FAERS Safety Report 23825011 (Version 2)
Quarter: 2024Q3

REPORT INFORMATION
  Report Type: Spontaneous
  Country: US (occurrence: US)
  Receive Date: 20240507
  Receipt Date: 20240924
  Transmission Date: 20241017
  Serious: Yes (Other)
  Sender: MERCK
  Company Number: US-009507513-2405USA001109

PATIENT
  Age: 61 Year
  Sex: Female

DRUGS (2)
  1. SIVEXTRO [Suspect]
     Active Substance: TEDIZOLID PHOSPHATE
     Indication: Pneumonia
     Dosage: UNK, FOR 402 DAYS
     Route: 048
  2. SERTRALINE [Concomitant]
     Active Substance: SERTRALINE HYDROCHLORIDE
     Indication: Infection
     Dosage: 200 MILLIGRAM, QD; FOR 402 DAYS

REACTIONS (2)
  - Serotonin syndrome [Unknown]
  - Product use in unapproved indication [Unknown]
